FAERS Safety Report 21058842 (Version 1)
Quarter: 2022Q3

REPORT INFORMATION
  Report Type: Spontaneous
  Country: US (occurrence: US)
  Receive Date: 20220708
  Receipt Date: 20220708
  Transmission Date: 20221027
  Serious: No
  Sender: FDA-Public Use
  Company Number: US-JAZZ-2022-US-000063

PATIENT
  Age: 62 Year
  Sex: Male

DRUGS (2)
  1. ZEPZELCA [Suspect]
     Active Substance: LURBINECTEDIN
     Indication: Small cell lung cancer
     Dosage: 3.2 MG/M2 EVERY 21 DAYS
     Route: 042
     Dates: start: 20211117
  2. ZEPZELCA [Suspect]
     Active Substance: LURBINECTEDIN
     Dosage: SECOND DOSE
     Route: 042
     Dates: start: 20211208

REACTIONS (2)
  - Administration site extravasation [Unknown]
  - Tissue injury [Unknown]

NARRATIVE: CASE EVENT DATE: 20211208
